FAERS Safety Report 5197583-3 (Version None)
Quarter: 2006Q4

REPORT INFORMATION
  Report Type: 
  Country: None (occurrence: None)
  Receive Date: 20061228
  Receipt Date: 20061218
  Transmission Date: 20070319
  Serious: Yes (Hospitalization)
  Sender: FDA-Public Use
  Company Number: 2006SP008595

PATIENT
  Age: 52 Year
  Sex: Male

DRUGS (8)
  1. REBETOL [Suspect]
     Indication: HEPATITIS C
     Dosage: 1200 MG; QD; PO
     Route: 048
     Dates: start: 20060630, end: 20060918
  2. PEGASYS [Suspect]
     Indication: HEPATITIS C
     Dosage: 180 MCG; QW; SC; SEE IMAGE
     Route: 058
     Dates: start: 20060630, end: 20060724
  3. PEGASYS [Suspect]
     Indication: HEPATITIS C
     Dosage: 180 MCG; QW; SC; SEE IMAGE
     Route: 058
     Dates: start: 20060724, end: 20060918
  4. AVLOCARDYL [Concomitant]
  5. ALDACTONE [Concomitant]
  6. INSULATARD NPH HUMAN [Concomitant]
  7. ACTRAPID [Concomitant]
  8. CLAMOXYL [Concomitant]

REACTIONS (18)
  - BRAIN OEDEMA [None]
  - CONDITION AGGRAVATED [None]
  - COORDINATION ABNORMAL [None]
  - DYSARTHRIA [None]
  - DYSPHAGIA [None]
  - DYSPHONIA [None]
  - FACIAL PALSY [None]
  - HEMIPARESIS [None]
  - HEPATIC CIRRHOSIS [None]
  - JC VIRUS INFECTION [None]
  - LYMPHOPENIA [None]
  - NEUTROPENIA [None]
  - PLATELET COUNT DECREASED [None]
  - PROGRESSIVE MULTIFOCAL LEUKOENCEPHALOPATHY [None]
  - PROTHROMBIN TIME RATIO INCREASED [None]
  - TONGUE PARALYSIS [None]
  - VITAMIN D DECREASED [None]
  - WHITE BLOOD CELL COUNT DECREASED [None]
